FAERS Safety Report 14006946 (Version 1)
Quarter: 2017Q3

REPORT INFORMATION
  Report Type: Spontaneous
  Country: US (occurrence: None)
  Receive Date: 20170922
  Receipt Date: 20170922
  Transmission Date: 20171128
  Serious: Yes (Death)
  Sender: FDA-Public Use
  Company Number: None

PATIENT
  Age: 76 Year
  Sex: Male

DRUGS (16)
  1. HYDROCHLOROT [Concomitant]
     Active Substance: HYDROCHLOROTHIAZIDE
  2. FOLIC ACID. [Concomitant]
     Active Substance: FOLIC ACID
  3. LUMIGAN [Concomitant]
     Active Substance: BIMATOPROST
  4. KLOR-CON [Concomitant]
     Active Substance: POTASSIUM CHLORIDE
  5. LEXAPRO [Concomitant]
     Active Substance: ESCITALOPRAM OXALATE
  6. OMEPRAZOLE. [Concomitant]
     Active Substance: OMEPRAZOLE
  7. DEXAMETHASON [Concomitant]
     Active Substance: DEXAMETHASONE
  8. LUPRON DEPOT [Concomitant]
     Active Substance: LEUPROLIDE ACETATE
  9. LUPRON DEPOT [Suspect]
     Active Substance: LEUPROLIDE ACETATE
     Indication: PROSTATE CANCER
     Dosage: FREQUENCY - Q 3 MONTHS
     Route: 030
     Dates: start: 20160304
  10. CALCIUM + D3 [Concomitant]
     Active Substance: CALCIUM\CHOLECALCIFEROL
  11. METOPROLOL. [Concomitant]
     Active Substance: METOPROLOL
  12. PREDNISONE. [Concomitant]
     Active Substance: PREDNISONE
  13. PROCHLORPER [Concomitant]
  14. ASPIRIN. [Concomitant]
     Active Substance: ASPIRIN
  15. CALCIUM 600 [Concomitant]
  16. VITAMIN B12 [Concomitant]
     Active Substance: CYANOCOBALAMIN

REACTIONS (1)
  - Death [None]
